FAERS Safety Report 8963290 (Version 1)
Quarter: 2012Q4

REPORT INFORMATION
  Report Type: 
  Country: US (occurrence: US)
  Receive Date: 20121214
  Receipt Date: 20121214
  Transmission Date: 20130627
  Serious: No
  Sender: FDA-Public Use
  Company Number: US-009507513-1212USA001288

PATIENT

DRUGS (5)
  1. DULERA [Suspect]
     Indication: ASTHMA
     Dosage: 2 inhalations twice daily
     Dates: start: 201111
  2. PROTONIX [Concomitant]
  3. SINGULAIR [Concomitant]
  4. TRAMADOL HYDROCHLORIDE [Concomitant]
  5. CELEBREX [Concomitant]

REACTIONS (3)
  - Dyspnoea [Unknown]
  - Incorrect drug administration duration [Unknown]
  - Device breakage [Unknown]
